FAERS Safety Report 5773695-8 (Version None)
Quarter: 2008Q2

REPORT INFORMATION
  Report Type: 
  Country: None (occurrence: None)
  Receive Date: 20080616
  Receipt Date: 20080606
  Transmission Date: 20081010
  Serious: Yes (Other)
  Sender: FDA-Public Use
  Company Number: US-BAYER-200810074NA

PATIENT
  Age: 44 Year
  Sex: Female
  Weight: 73 kg

DRUGS (1)
  1. BETASERON [Suspect]
     Indication: RELAPSING-REMITTING MULTIPLE SCLEROSIS
     Dosage: TOTAL DAILY DOSE: 8 MIU
     Route: 058
     Dates: start: 19970915, end: 20080118

REACTIONS (3)
  - ABASIA [None]
  - INJECTION SITE PAIN [None]
  - INJECTION SITE SWELLING [None]
